FAERS Safety Report 9360877 (Version 1)
Quarter: 2013Q2

REPORT INFORMATION
  Report Type: Report from Study
  Country: US (occurrence: US)
  Receive Date: 20130621
  Receipt Date: 20130621
  Transmission Date: 20140414
  Serious: Yes (Death, Hospitalization)
  Sender: FDA-Public Use
  Company Number: US-EISAI INC-E7272-00187-CLI-US

PATIENT
  Age: 80 Year
  Sex: Male

DRUGS (1)
  1. ONTAK [Suspect]
     Indication: MYCOSIS FUNGOIDES STAGE I
     Dosage: UNKNOWN
     Route: 041

REACTIONS (2)
  - Sepsis [Fatal]
  - Capillary leak syndrome [Recovered/Resolved]
